FAERS Safety Report 24818067 (Version 2)
Quarter: 2025Q2

REPORT INFORMATION
  Report Type: Spontaneous
  Country: RU (occurrence: RU)
  Receive Date: 20250108
  Receipt Date: 20250411
  Transmission Date: 20250716
  Serious: Yes (Hospitalization, Other)
  Sender: CSL BEHRING
  Company Number: RU-BEH-2025190900

PATIENT
  Weight: 3.31 kg

DRUGS (1)
  1. PRIVIGEN [Suspect]
     Active Substance: HUMAN IMMUNOGLOBULIN G
     Indication: Hydrops foetalis
     Dosage: 100 ML, TID QOD
     Route: 065

REACTIONS (4)
  - Pericardial effusion [Recovered/Resolved]
  - Pulmonary hypoplasia [Unknown]
  - Foetal exposure during pregnancy [Unknown]
  - Off label use [Unknown]
